FAERS Safety Report 8943545 (Version 1)
Quarter: 2012Q4

REPORT INFORMATION
  Report Type: 
  Country: US (occurrence: US)
  Receive Date: 20121204
  Receipt Date: 20121204
  Transmission Date: 20130627
  Serious: No
  Sender: FDA-Public Use
  Company Number: US-PFIZER INC-2012303643

PATIENT
  Age: 54 Year
  Sex: Female
  Weight: 45.35 kg

DRUGS (9)
  1. LYRICA [Suspect]
     Indication: PAIN
     Dosage: 75 mg, 2x/day
     Dates: end: 20120510
  2. MS CONTIN [Suspect]
     Indication: PAIN
     Dosage: 30 mg, 3x/day
     Dates: start: 1998
  3. VICODIN HP [Concomitant]
     Indication: PAIN
     Dosage: 10/660 mg, 2x/day
  4. SOMA [Concomitant]
     Indication: MUSCLE SPASMS
     Dosage: 350 mg, 4x/day
     Dates: start: 1998
  5. REMERON [Concomitant]
     Indication: APPETITE DISORDER
     Dosage: 15 mg, 2x/day
  6. REMERON [Concomitant]
     Indication: ANTIDEPRESSANT THERAPY
  7. LAMICTAL [Concomitant]
     Indication: AFFECTIVE DISORDER
     Dosage: 600 mg, daily
  8. TRAZODONE [Concomitant]
     Dosage: 300 mg, daily
  9. IMMUNOGLOBULINS [Concomitant]
     Indication: AUTOIMMUNE DISORDER
     Dosage: 20 mg, weekly

REACTIONS (2)
  - Pain [Not Recovered/Not Resolved]
  - Drug ineffective [Unknown]
